FAERS Safety Report 8393155-8 (Version None)
Quarter: 2012Q2

REPORT INFORMATION
  Report Type: 
  Country: None (occurrence: None)
  Receive Date: 20120529
  Receipt Date: 20120420
  Transmission Date: 20120825
  Serious: No
  Sender: FDA-Public Use
  Company Number: US-ABBOTT-12P-163-0928496-00

PATIENT
  Sex: Male
  Weight: 97.61 kg

DRUGS (7)
  1. WARFARIN SODIUM [Concomitant]
     Indication: ATRIAL FIBRILLATION
  2. DIGOXIN [Concomitant]
     Indication: ATRIAL FIBRILLATION
  3. FUROSEMIDE [Concomitant]
     Indication: CARDIAC DISORDER
  4. LISINOPRIL [Concomitant]
     Indication: PRODUCT USED FOR UNKNOWN INDICATION
  5. SIMVASTATIN [Concomitant]
     Indication: PRODUCT USED FOR UNKNOWN INDICATION
  6. ANDROGEL [Suspect]
     Indication: BLOOD TESTOSTERONE DECREASED
     Dosage: 2.5 GRAMS IN THE MORNING AND 2.5 GRAMS IN EVENING
     Route: 061
     Dates: start: 20110601
  7. METOPROLOL TARTRATE [Concomitant]
     Indication: CARDIAC DISORDER

REACTIONS (4)
  - INCORRECT DOSE ADMINISTERED [None]
  - DRUG ADMINISTERED AT INAPPROPRIATE SITE [None]
  - HAIR GROWTH ABNORMAL [None]
  - THERAPEUTIC RESPONSE UNEXPECTED [None]
